FAERS Safety Report 21932967 (Version 2)
Quarter: 2023Q1

REPORT INFORMATION
  Report Type: Spontaneous
  Country: MA (occurrence: MA)
  Receive Date: 20230131
  Receipt Date: 20230203
  Transmission Date: 20230418
  Serious: Yes (Other)
  Sender: FDA-Public Use
  Company Number: MA-PFIZER INC-PV202300017633

PATIENT
  Age: 59 Year
  Sex: Male

DRUGS (3)
  1. SUTENT [Suspect]
     Active Substance: SUNITINIB MALATE
     Indication: Renal cell carcinoma
     Dosage: 50 MG, DAILY, SCHEME 2 WEEKS ON / 1 WEEK OFF?
  2. ALLOPURINOL [Concomitant]
     Active Substance: ALLOPURINOL
     Indication: Gout
     Dosage: UNK
  3. ZOLEDRONIC ACID [Concomitant]
     Active Substance: ZOLEDRONIC ACID
     Dosage: 1 DF, EVERY 28 DAYS

REACTIONS (6)
  - Hepatic cytolysis [Recovering/Resolving]
  - Cholestasis [Recovering/Resolving]
  - Thrombocytopenia [Recovering/Resolving]
  - Neoplasm progression [Recovering/Resolving]
  - Fatigue [Recovering/Resolving]
  - Dry skin [Recovering/Resolving]
